FAERS Safety Report 20613234 (Version 2)
Quarter: 2023Q4

REPORT INFORMATION
  Report Type: Spontaneous
  Country: US (occurrence: US)
  Receive Date: 20220318
  Receipt Date: 20231129
  Transmission Date: 20240110
  Serious: No
  Sender: FDA-Public Use
  Company Number: US-SEPTODONT-2021006480

PATIENT
  Age: 47 Year
  Sex: Male
  Weight: 72 kg

DRUGS (2)
  1. EPINEPHRINE BITARTRATE\LIDOCAINE HYDROCHLORIDE [Suspect]
     Active Substance: EPINEPHRINE BITARTRATE\LIDOCAINE HYDROCHLORIDE
     Indication: Dental local anaesthesia
     Dosage: 2 INJECTIONS (0.5 -MENTAL BLOCK + 0.5 -IAN BLOCK), HEATHLY INJECTION SITE?SEPTOJECT 27 G, LONG
     Route: 004
     Dates: start: 20210805, end: 20210805
  2. BENZOCAINE [Concomitant]
     Active Substance: BENZOCAINE
     Indication: Product used for unknown indication
     Dates: start: 20210805

REACTIONS (5)
  - Hypoaesthesia oral [Recovered/Resolved]
  - Therapeutic product effect prolonged [Recovered/Resolved]
  - Condition aggravated [Recovered/Resolved]
  - Injection site discomfort [Recovered/Resolved]
  - Electric shock sensation [Recovered/Resolved]

NARRATIVE: CASE EVENT DATE: 20210805
